FAERS Safety Report 5278021-9 (Version None)
Quarter: 2007Q1

REPORT INFORMATION
  Report Type: 
  Country: None (occurrence: None)
  Receive Date: 20070321
  Receipt Date: 20070306
  Transmission Date: 20070707
  Serious: Yes (Death)
  Sender: FDA-Public Use
  Company Number: 2007000418

PATIENT
  Age: 50 Year
  Sex: Male

DRUGS (6)
  1. TARCEVA [Suspect]
     Indication: LUNG NEOPLASM MALIGNANT
     Dosage: 150 MG (PO QD), ORAL
     Route: 048
     Dates: start: 20061111, end: 20070131
  2. CORTISONE ACETATE [Concomitant]
  3. MORPHINE [Concomitant]
  4. PREDNISOLONE [Concomitant]
  5. MORPHINE SULFATE INJ [Concomitant]
  6. GABAPENTIN [Concomitant]

REACTIONS (2)
  - DERMATITIS ACNEIFORM [None]
  - SEPTIC SHOCK [None]
